FAERS Safety Report 7765701-6 (Version None)
Quarter: 2011Q3

REPORT INFORMATION
  Report Type: 
  Country: None (occurrence: None)
  Receive Date: 20110921
  Receipt Date: 20110914
  Transmission Date: 20111222
  Serious: Yes (Hospitalization)
  Sender: FDA-Public Use
  Company Number: US-ALEXION-A201000090

PATIENT

DRUGS (3)
  1. SOLIRIS [Suspect]
     Indication: PAROXYSMAL NOCTURNAL HAEMOGLOBINURIA
     Dosage: 600 MG, QW
     Route: 042
     Dates: start: 20080507, end: 20080528
  2. SOLIRIS [Suspect]
     Dosage: 900 MG, UNK
     Route: 042
     Dates: start: 20080604
  3. SOLIRIS [Suspect]
     Dosage: Q14D
     Route: 042
     Dates: start: 20100203

REACTIONS (5)
  - CONDITION AGGRAVATED [None]
  - MATERNAL EXPOSURE DURING PREGNANCY [None]
  - URETHRAL INJURY [None]
  - HAEMOLYSIS [None]
  - PREMATURE RUPTURE OF MEMBRANES [None]
